FAERS Safety Report 13538704 (Version 1)
Quarter: 2017Q2

REPORT INFORMATION
  Report Type: Spontaneous
  Country: US (occurrence: US)
  Receive Date: 20170512
  Receipt Date: 20170512
  Transmission Date: 20170830
  Serious: Yes (Death, Life-Threatening, Other)
  Sender: FDA-Public Use
  Company Number: US-FLAMINGO-000598

PATIENT
  Age: 54 Year
  Sex: Male

DRUGS (6)
  1. AMPHOTERICIN B/AMPHOTERICIN B/LIPOSOME [Concomitant]
     Indication: PROPHYLAXIS
     Dosage: NEBULIZED AMPHOTERICIN B
  2. CEFEPIME [Concomitant]
     Active Substance: CEFEPIME HYDROCHLORIDE
     Indication: PYREXIA
     Route: 042
  3. MEROPENEM. [Suspect]
     Active Substance: MEROPENEM
     Indication: STOMATOCOCCAL INFECTION
  4. ACICLOVIR [Concomitant]
     Active Substance: ACYCLOVIR
     Indication: PROPHYLAXIS
     Dosage: NEBULIZED AMPHOTERICIN B
  5. METRONIDAZOLE. [Suspect]
     Active Substance: METRONIDAZOLE
     Indication: ANTIBIOTIC THERAPY
  6. VANCOMYCIN [Suspect]
     Active Substance: VANCOMYCIN
     Indication: STOMATOCOCCAL INFECTION

REACTIONS (4)
  - Multiple organ dysfunction syndrome [Fatal]
  - Neutropenic colitis [Unknown]
  - Drug ineffective [Unknown]
  - Sepsis [Fatal]
